FAERS Safety Report 8610546-8 (Version None)
Quarter: 2012Q3

REPORT INFORMATION
  Report Type: 
  Country: None (occurrence: None)
  Receive Date: 20120822
  Receipt Date: 20120813
  Transmission Date: 20120928
  Serious: Yes (Other)
  Sender: FDA-Public Use
  Company Number: FR-JNJFOC-20120807687

PATIENT
  Age: 27 Year
  Sex: Female

DRUGS (6)
  1. REMICADE [Suspect]
     Route: 042
     Dates: start: 20120717, end: 20120717
  2. REMICADE [Suspect]
     Indication: ANKYLOSING SPONDYLITIS
     Route: 042
     Dates: start: 20120625
  3. POLARAMINE [Concomitant]
     Indication: PREMEDICATION
     Route: 065
     Dates: start: 20120717
  4. REMICADE [Suspect]
     Route: 042
     Dates: start: 20120709
  5. POLARAMINE [Concomitant]
     Route: 065
  6. REMICADE [Suspect]
     Route: 042
     Dates: start: 20110301, end: 20111025

REACTIONS (6)
  - INFUSION RELATED REACTION [None]
  - BODY TEMPERATURE INCREASED [None]
  - RASH [None]
  - MATERNAL EXPOSURE DURING PREGNANCY [None]
  - RESPIRATORY DISORDER [None]
  - CHILLS [None]
